FAERS Safety Report 11174283 (Version 2)
Quarter: 2015Q3

REPORT INFORMATION
  Report Type: Spontaneous
  Country: FR (occurrence: FR)
  Receive Date: 20150609
  Receipt Date: 20150730
  Transmission Date: 20151125
  Serious: Yes (Other)
  Sender: FDA-Public Use
  Company Number: FR-BIOGENIDEC-2015BI074205

PATIENT
  Age: 48 Year
  Sex: Female

DRUGS (11)
  1. TECFIDERA [Suspect]
     Active Substance: DIMETHYL FUMARATE
     Indication: RELAPSING-REMITTING MULTIPLE SCLEROSIS
     Route: 048
     Dates: end: 201506
  2. LYRICA [Concomitant]
     Active Substance: PREGABALIN
  3. CYMBALTA [Concomitant]
     Active Substance: DULOXETINE HYDROCHLORIDE
  4. THERALEN [Concomitant]
     Active Substance: TRIMEPRAZINE
  5. XEROQUEL [Concomitant]
     Active Substance: QUETIAPINE FUMARATE
  6. IMOVANE [Concomitant]
     Active Substance: ZOPICLONE
  7. CERIS [Concomitant]
     Active Substance: TROSPIUM CHLORIDE
  8. TECFIDERA [Suspect]
     Active Substance: DIMETHYL FUMARATE
     Indication: RELAPSING-REMITTING MULTIPLE SCLEROSIS
     Dates: start: 201410
  9. LAROXYL [Concomitant]
     Active Substance: AMITRIPTYLINE
  10. ATARAX [Concomitant]
     Active Substance: HYDROXYZINE\HYDROXYZINE HYDROCHLORIDE
  11. RIVOTRIL [Concomitant]
     Active Substance: CLONAZEPAM

REACTIONS (1)
  - Malignant melanoma [Recovered/Resolved]

NARRATIVE: CASE EVENT DATE: 20150515
